FAERS Safety Report 5151347-5 (Version None)
Quarter: 2006Q4

REPORT INFORMATION
  Report Type: 
  Country: None (occurrence: None)
  Receive Date: 20061115
  Receipt Date: 20061107
  Transmission Date: 20070319
  Serious: Yes (Hospitalization)
  Sender: FDA-Public Use
  Company Number: JP-GLAXOSMITHKLINE-B0446482A

PATIENT
  Age: 1 Year
  Sex: Female

DRUGS (10)
  1. SAWACILLIN [Suspect]
     Indication: DRUG USE FOR UNKNOWN INDICATION
     Route: 048
     Dates: start: 20061003, end: 20061004
  2. DORMICUM [Suspect]
     Indication: DRUG USE FOR UNKNOWN INDICATION
     Route: 065
     Dates: start: 20061012, end: 20061017
  3. FROBEN [Suspect]
     Indication: DRUG USE FOR UNKNOWN INDICATION
     Route: 048
     Dates: start: 20061005, end: 20061016
  4. ACETAMINOPHEN [Suspect]
     Indication: DRUG USE FOR UNKNOWN INDICATION
     Route: 054
  5. FLOMOX [Suspect]
     Indication: DRUG USE FOR UNKNOWN INDICATION
     Route: 048
  6. FAMOTIDINE [Concomitant]
     Route: 042
     Dates: start: 20061012, end: 20061017
  7. HORIZON [Concomitant]
     Route: 065
     Dates: start: 20061012, end: 20061012
  8. GLOVENIN [Concomitant]
     Route: 042
     Dates: start: 20061009, end: 20061015
  9. FLUMARIN [Concomitant]
     Dates: start: 20061012, end: 20061016
  10. IMMUNE GLOBULIN INTRAVENOUS (HUMAN) [Concomitant]
     Route: 042
     Dates: start: 20061009, end: 20061015

REACTIONS (4)
  - EPIDERMOLYSIS [None]
  - HYPERTHERMIA [None]
  - PYREXIA [None]
  - RASH [None]
